FAERS Safety Report 12439344 (Version 3)
Quarter: 2016Q4

REPORT INFORMATION
  Report Type: Spontaneous
  Country: US (occurrence: US)
  Receive Date: 20160606
  Receipt Date: 20161205
  Transmission Date: 20170207
  Serious: No
  Sender: FDA-Public Use
  Company Number: US-PFIZER INC-2016283968

PATIENT
  Sex: Female
  Weight: 52.15 kg

DRUGS (3)
  1. ERYTHROMYCIN. [Suspect]
     Active Substance: ERYTHROMYCIN
     Dosage: UNK
  2. BIAXIN [Suspect]
     Active Substance: CLARITHROMYCIN
  3. MONOSODIUM GLUTAMATE [Suspect]
     Active Substance: MONOSODIUM GLUTAMATE

REACTIONS (1)
  - Drug hypersensitivity [Unknown]
